FAERS Safety Report 5960294-8 (Version None)
Quarter: 2008Q4

REPORT INFORMATION
  Report Type: 
  Country: None (occurrence: None)
  Receive Date: 20081118
  Receipt Date: 20081118
  Transmission Date: 20090506
  Serious: Yes (Other)
  Sender: FDA-Public Use
  Company Number: None

PATIENT
  Age: 49 Year
  Sex: Female
  Weight: 48.0813 kg

DRUGS (2)
  1. CREST PRO HEALTH MOUTHWASH CREST [Suspect]
     Dates: start: 20081115, end: 20081115
  2. CREST PRO HEALTH TOOTHPASTE [Suspect]
     Dates: start: 20081115, end: 20081115

REACTIONS (3)
  - DRUG HYPERSENSITIVITY [None]
  - ORAL MUCOSAL EXFOLIATION [None]
  - THROAT TIGHTNESS [None]
